FAERS Safety Report 11806356 (Version 1)
Quarter: 2015Q4

REPORT INFORMATION
  Report Type: Spontaneous
  Country: US (occurrence: US)
  Receive Date: 20151207
  Receipt Date: 20151207
  Transmission Date: 20160305
  Serious: Yes (Hospitalization)
  Sender: FDA-Public Use
  Company Number: US-FRESENIUS KABI-FK201506290

PATIENT
  Age: 18 Year
  Sex: Male

DRUGS (1)
  1. CALCIUM GLUCONATE (MANUFACTURER UNKNOWN) [Suspect]
     Active Substance: CALCIUM GLUCONATE
     Indication: NUTRITIONAL SUPPLEMENTATION
     Route: 051

REACTIONS (2)
  - Hypercalcaemia [Recovered/Resolved]
  - Heart injury [Recovered/Resolved]
